FAERS Safety Report 14173687 (Version 1)
Quarter: 2017Q4

REPORT INFORMATION
  Report Type: Spontaneous
  Country: DK (occurrence: DK)
  Receive Date: 20171109
  Receipt Date: 20171109
  Transmission Date: 20180321
  Serious: Yes (Hospitalization, Disabling)
  Sender: FDA-Public Use
  Company Number: DK-ACCORD-061019

PATIENT
  Age: 66 Year
  Sex: Female
  Weight: 70 kg

DRUGS (1)
  1. LETROZOLE ACCORD [Suspect]
     Active Substance: LETROZOLE
     Indication: ADJUVANT THERAPY
     Route: 048
     Dates: start: 201005, end: 201408

REACTIONS (4)
  - Coordination abnormal [Not Recovered/Not Resolved]
  - Balance disorder [Not Recovered/Not Resolved]
  - Muscular weakness [Not Recovered/Not Resolved]
  - Cerebral arteriosclerosis [Not Recovered/Not Resolved]

NARRATIVE: CASE EVENT DATE: 2013
